FAERS Safety Report 8511097-1 (Version None)
Quarter: 2012Q3

REPORT INFORMATION
  Report Type: 
  Country: None (occurrence: None)
  Receive Date: 20120716
  Receipt Date: 20120709
  Transmission Date: 20120928
  Serious: Yes (Death, Other)
  Sender: FDA-Public Use
  Company Number: US-BAYER-200940199NA

PATIENT
  Age: 20 Year
  Sex: Female
  Weight: 43.537 kg

DRUGS (26)
  1. CARVEDILOL [Concomitant]
     Dosage: UNK
  2. ENALAPRIL MALEATE [Concomitant]
     Dosage: UNK
  3. PREDNISONE [Concomitant]
  4. NEORAL [Concomitant]
  5. VECURONIUM BROMIDE [Concomitant]
     Dosage: UNK
     Dates: start: 20021001, end: 20021001
  6. RED BLOOD CELLS [Concomitant]
     Dosage: 2 U, UNK
     Dates: start: 20021001
  7. AMOXICILLIN [Concomitant]
  8. EDECRIN [Concomitant]
  9. NYSTATIN [Concomitant]
     Dosage: UNK
  10. ANCEF [Concomitant]
     Dosage: UNK
     Dates: start: 20021001, end: 20021001
  11. DOPAMINE HCL [Concomitant]
     Dosage: UNK
     Dates: start: 20021001, end: 20021001
  12. LASIX [Concomitant]
     Dosage: UNK
  13. RAPAMUNE [Concomitant]
  14. FENTANYL [Concomitant]
  15. VERSED [Concomitant]
     Dosage: UNK
     Dates: start: 20021001, end: 20021001
  16. ASPIRIN [Concomitant]
     Dosage: UNK
  17. CYCLOSPORINE [Concomitant]
     Dosage: UNK
  18. VALGANCICLOVIR [Concomitant]
  19. NIPRIDE [Concomitant]
     Dosage: UNK
     Dates: start: 20021001, end: 20021001
  20. HEPARIN [Concomitant]
     Dosage: UNK
     Dates: start: 20021001, end: 20021001
  21. TRASYLOL [Suspect]
     Indication: CORONARY ARTERY BYPASS
     Dosage: 1 ML INITIAL DOSE, 200 ML LOADING DOSE AND 30CC/HR INFUSION
     Route: 042
     Dates: start: 20021001, end: 20021002
  22. TRASYLOL [Suspect]
     Indication: VENTRICULAR ASSIST DEVICE INSERTION
  23. DIGOXIN [Concomitant]
  24. ACYCLOVIR [Concomitant]
  25. HYDRALAZINE HYDROCHLORIDE [Concomitant]
  26. MILRINONE LACTATE [Concomitant]
     Dosage: UNK
     Dates: start: 20021001, end: 20021001

REACTIONS (14)
  - FEAR [None]
  - RENAL FAILURE [None]
  - EMOTIONAL DISTRESS [None]
  - DEPRESSION [None]
  - RENAL INJURY [None]
  - DEATH [None]
  - PAIN [None]
  - ANXIETY [None]
  - UNEVALUABLE EVENT [None]
  - ANHEDONIA [None]
  - RENAL IMPAIRMENT [None]
  - STRESS [None]
  - INJURY [None]
  - MULTI-ORGAN FAILURE [None]
